FAERS Safety Report 9451329 (Version 1)
Quarter: 2013Q3

REPORT INFORMATION
  Report Type: Spontaneous
  Country: US (occurrence: US)
  Receive Date: 20130809
  Receipt Date: 20130809
  Transmission Date: 20140515
  Serious: Yes (Other)
  Sender: FDA-Public Use
  Company Number: US-TEVA-364117USA

PATIENT
  Sex: Female

DRUGS (1)
  1. METOCLOPRAMIDE [Suspect]
     Dates: start: 200701, end: 200911

REACTIONS (3)
  - Tardive dyskinesia [Unknown]
  - Tremor [Unknown]
  - Dyskinesia [Unknown]
